FAERS Safety Report 5724174-5 (Version None)
Quarter: 2008Q2

REPORT INFORMATION
  Report Type: 
  Country: None (occurrence: None)
  Receive Date: 20080430
  Receipt Date: 20080422
  Transmission Date: 20081010
  Serious: Yes (Hospitalization)
  Sender: FDA-Public Use
  Company Number: PHRM2008FR01388

PATIENT
  Age: 59 Year
  Sex: Female

DRUGS (4)
  1. COLCHIMAX /FRA/ [Suspect]
     Indication: ARTHRALGIA
     Route: 048
     Dates: start: 20080226, end: 20080226
  2. AUGMENTIN [Suspect]
     Route: 048
     Dates: start: 20080222, end: 20080229
  3. FLAGYL [Concomitant]
     Route: 048
     Dates: start: 20080222, end: 20080229
  4. VOLTAREN [Suspect]
     Indication: ARTHRALGIA
     Route: 048
     Dates: start: 20080216

REACTIONS (8)
  - APLASIA [None]
  - BLAST CELLS ABSENT [None]
  - C-REACTIVE PROTEIN INCREASED [None]
  - HAEMOGLOBIN DECREASED [None]
  - LYMPHOCYTE COUNT DECREASED [None]
  - NEUTROPHIL COUNT DECREASED [None]
  - PLATELET COUNT DECREASED [None]
  - WHITE BLOOD CELL COUNT DECREASED [None]
